FAERS Safety Report 5717065-7 (Version None)
Quarter: 2008Q2

REPORT INFORMATION
  Report Type: 
  Country: None (occurrence: None)
  Receive Date: 20080424
  Receipt Date: 20080411
  Transmission Date: 20081010
  Serious: Yes (Other)
  Sender: FDA-Public Use
  Company Number: IT-GENENTECH-259559

PATIENT
  Sex: Female

DRUGS (1)
  1. HERCEPTIN [Suspect]
     Indication: BREAST CANCER
     Dosage: 696 MG, UNK
     Route: 042
     Dates: start: 20080317, end: 20080317

REACTIONS (2)
  - HYPERTENSIVE CRISIS [None]
  - INFUSION RELATED REACTION [None]
